FAERS Safety Report 21130686 (Version 2)
Quarter: 2022Q3

REPORT INFORMATION
  Report Type: Spontaneous
  Country: US (occurrence: US)
  Receive Date: 20220726
  Receipt Date: 20220727
  Transmission Date: 20221027
  Serious: No
  Sender: FDA-Public Use
  Company Number: US-JNJFOC-20220730973

PATIENT
  Sex: Female

DRUGS (1)
  1. REMICADE [Suspect]
     Active Substance: INFLIXIMAB
     Indication: Hidradenitis
     Route: 041
     Dates: start: 202206

REACTIONS (4)
  - Off label use [Unknown]
  - Hidradenitis [Unknown]
  - Blister [Unknown]
  - Emotional distress [Unknown]
